FAERS Safety Report 6107755-9 (Version None)
Quarter: 2009Q1

REPORT INFORMATION
  Report Type: 
  Country: None (occurrence: None)
  Receive Date: 20090309
  Receipt Date: 20090305
  Transmission Date: 20090719
  Serious: Yes (Hospitalization)
  Sender: FDA-Public Use
  Company Number: A0772123B

PATIENT
  Age: 38 Year
  Sex: Female
  Weight: 63.1 kg

DRUGS (13)
  1. MELPHALAN [Suspect]
     Indication: AMYLOIDOSIS
     Dates: start: 20070918, end: 20070919
  2. VELCADE [Suspect]
     Indication: AMYLOIDOSIS
     Dosage: 1.3MGM2 VARIABLE DOSE
     Dates: start: 20071207
  3. DEXAMETHASONE [Suspect]
     Indication: AMYLOIDOSIS
     Dates: start: 20071207
  4. TORSEMIDE [Concomitant]
  5. PROTONIX [Concomitant]
  6. SENNA [Concomitant]
  7. COLACE [Concomitant]
  8. LEVOFLOXACIN [Concomitant]
     Dates: end: 20080121
  9. METOPROLOL [Concomitant]
  10. VORICONAZOLE [Concomitant]
  11. LACTULOSE [Concomitant]
  12. INSPRA [Concomitant]
  13. ASPIRIN [Concomitant]
     Dates: start: 20080123

REACTIONS (27)
  - ABDOMINAL DISTENSION [None]
  - ATELECTASIS [None]
  - BACK PAIN [None]
  - BLOOD PRESSURE DECREASED [None]
  - BREATH SOUNDS ABNORMAL [None]
  - CONSTIPATION [None]
  - DECREASED APPETITE [None]
  - DEEP VEIN THROMBOSIS [None]
  - ELECTROCARDIOGRAM QT PROLONGED [None]
  - ELECTROCARDIOGRAM T WAVE ABNORMAL [None]
  - EPISTAXIS [None]
  - HAEMOGLOBIN DECREASED [None]
  - HYPOAESTHESIA [None]
  - INFLUENZA [None]
  - MYCOBACTERIAL INFECTION [None]
  - NEUTROPENIC INFECTION [None]
  - OEDEMA PERIPHERAL [None]
  - PARAESTHESIA [None]
  - PERIORBITAL OEDEMA [None]
  - PLEURAL EFFUSION [None]
  - PNEUMONIA [None]
  - PRODUCTIVE COUGH [None]
  - PYREXIA [None]
  - RESPIRATORY TRACT HAEMORRHAGE [None]
  - TACHYCARDIA [None]
  - WHEEZING [None]
  - WHITE BLOOD CELL COUNT DECREASED [None]
